FAERS Safety Report 16409897 (Version 1)
Quarter: 2019Q2

REPORT INFORMATION
  Report Type: Spontaneous
  Country: US (occurrence: US)
  Receive Date: 20190502
  Receipt Date: 20190502
  Transmission Date: 20190711
  Serious: No
  Sender: FDA-Public Use
  Company Number: None

PATIENT
  Age: 47 Year
  Sex: Female

DRUGS (1)
  1. CYCLOSPORINE. [Suspect]
     Active Substance: CYCLOSPORINE
     Dates: start: 20190502

REACTIONS (4)
  - Psoriasis [None]
  - Blood creatinine increased [None]
  - Hirsutism [None]
  - Hypertension [None]

NARRATIVE: CASE EVENT DATE: 20190502
